FAERS Safety Report 21721531 (Version 1)
Quarter: 2022Q4

REPORT INFORMATION
  Report Type: Spontaneous
  Country: US (occurrence: US)
  Receive Date: 20221213
  Receipt Date: 20221213
  Transmission Date: 20230113
  Serious: Yes (Hospitalization)
  Sender: FDA-Public Use
  Company Number: US-KYOWAKIRIN-2022BKK019274

PATIENT

DRUGS (1)
  1. NOURIANZ [Suspect]
     Active Substance: ISTRADEFYLLINE
     Indication: Product used for unknown indication
     Dosage: 20 MG
     Route: 065

REACTIONS (3)
  - Hospitalisation [Unknown]
  - Dysphagia [Unknown]
  - Sigmoidectomy [Unknown]

NARRATIVE: CASE EVENT DATE: 20220901
